FAERS Safety Report 18098468 (Version 1)
Quarter: 2020Q3

REPORT INFORMATION
  Report Type: Spontaneous
  Country: AR (occurrence: AR)
  Receive Date: 20200731
  Receipt Date: 20200731
  Transmission Date: 20201103
  Serious: Yes (Other)
  Sender: FDA-Public Use
  Company Number: AR-PFIZER INC-2020287476

PATIENT
  Age: 76 Year
  Sex: Female

DRUGS (1)
  1. IBRANCE [Suspect]
     Active Substance: PALBOCICLIB
     Indication: BREAST CANCER METASTATIC
     Dosage: 100 MG, CYCLIC ( DAILY SCHEME 3X1 )
     Dates: start: 20191212, end: 202006

REACTIONS (3)
  - Pulmonary oedema [Recovered/Resolved]
  - Decreased immune responsiveness [Recovered/Resolved]
  - Red blood cell abnormality [Recovered/Resolved]

NARRATIVE: CASE EVENT DATE: 202005
